FAERS Safety Report 22080312 (Version 1)
Quarter: 2023Q1

REPORT INFORMATION
  Report Type: Spontaneous
  Country: FR (occurrence: FR)
  Receive Date: 20230309
  Receipt Date: 20230309
  Transmission Date: 20230417
  Serious: Yes (Disabling)
  Sender: FDA-Public Use
  Company Number: None

PATIENT
  Age: 73 Year
  Sex: Female
  Weight: 59 kg

DRUGS (12)
  1. OXALIPLATIN [Suspect]
     Active Substance: OXALIPLATIN
     Indication: Adenocarcinoma pancreas
     Dosage: 140 MILLIGRAM
     Route: 042
     Dates: start: 20221206, end: 20221206
  2. IRINOTECAN [Suspect]
     Active Substance: IRINOTECAN
     Indication: Adenocarcinoma pancreas
     Dosage: 500 MILLIGRAM, QD
     Route: 042
     Dates: start: 20221206, end: 20221206
  3. GEMCITABINE [Suspect]
     Active Substance: GEMCITABINE
     Indication: Adenocarcinoma pancreas
     Dosage: 1600 MILLIGRAM, QW (D1)
     Route: 042
     Dates: start: 20221108, end: 20221108
  4. GEMCITABINE [Suspect]
     Active Substance: GEMCITABINE
     Dosage: 1600 MILLIGRAM, QW (D8)
     Route: 042
     Dates: start: 20221115, end: 20221115
  5. GEMCITABINE [Suspect]
     Active Substance: GEMCITABINE
     Dosage: 1600 MILLIGRAM, QW, (D15)
     Route: 042
     Dates: start: 20221122, end: 20221122
  6. CAPECITABINE [Suspect]
     Active Substance: CAPECITABINE
     Indication: Adenocarcinoma pancreas
     Dosage: 3950 MILLIGRAM, QD
     Route: 048
     Dates: start: 20221206, end: 20221206
  7. CHLORPROMAZINE [Suspect]
     Active Substance: CHLORPROMAZINE
     Indication: Nausea
     Dosage: UNK
     Route: 065
     Dates: start: 202212, end: 202212
  8. LEVOLEUCOVORIN CALCIUM [Suspect]
     Active Substance: LEVOLEUCOVORIN CALCIUM
     Indication: Adenocarcinoma pancreas
     Dosage: 330 MILLIGRAM, QD
     Route: 042
     Dates: start: 20221206, end: 20221206
  9. FLUOROURACIL [Suspect]
     Active Substance: FLUOROURACIL
     Indication: Adenocarcinoma pancreas
     Dosage: 650 MILLIGRAM, QD
     Route: 042
     Dates: start: 20221206, end: 20221206
  10. ABRAXANE [Concomitant]
     Active Substance: PACLITAXEL
     Indication: Adenocarcinoma pancreas
     Dosage: 205 MILLIGRAM, QW (D1)
     Route: 042
     Dates: start: 20221108, end: 20221108
  11. ABRAXANE [Concomitant]
     Active Substance: PACLITAXEL
     Dosage: 205 MILLIGRAM, QW (D8)
     Route: 042
     Dates: start: 20221115, end: 20221115
  12. ABRAXANE [Concomitant]
     Active Substance: PACLITAXEL
     Dosage: 205 MILLIGRAM, QW (D15)
     Route: 042
     Dates: start: 20221122, end: 20221122

REACTIONS (1)
  - Angle closure glaucoma [Not Recovered/Not Resolved]

NARRATIVE: CASE EVENT DATE: 20221223
